FAERS Safety Report 24710171 (Version 1)
Quarter: 2024Q4

REPORT INFORMATION
  Report Type: Other
  Country: US (occurrence: US)
  Receive Date: 20241209
  Receipt Date: 20241209
  Transmission Date: 20250115
  Serious: No
  Sender: GLENMARK
  Company Number: US-GLENMARK PHARMACEUTICALS-2024GMK092108

PATIENT

DRUGS (2)
  1. OMEPRAZOLE [Suspect]
     Active Substance: OMEPRAZOLE
     Indication: Product used for unknown indication
     Dosage: UNK, SAME MEDICATION TAKEN IN THE PAST
     Route: 065
  2. OMEPRAZOLE [Suspect]
     Active Substance: OMEPRAZOLE
     Dosage: UNK, NEW BOTTLE
     Route: 065

REACTIONS (3)
  - Dyspepsia [Unknown]
  - Nausea [Unknown]
  - Drug ineffective [Unknown]
